FAERS Safety Report 8925430 (Version 2)
Quarter: 2013Q2

REPORT INFORMATION
  Report Type: Report from Study
  Country: US (occurrence: US)
  Receive Date: 20121126
  Receipt Date: 20130530
  Transmission Date: 20140414
  Serious: Yes (Hospitalization)
  Sender: FDA-Public Use
  Company Number: US-ACTELION-A-NJ2012-74870

PATIENT
  Age: 69 Year
  Sex: Female

DRUGS (4)
  1. TRACLEER [Suspect]
     Indication: PULMONARY ARTERIAL HYPERTENSION
     Dosage: 125 MG, BID
     Route: 048
     Dates: start: 2004
  2. TRACLEER [Suspect]
     Dosage: 62.5 MG, BID
     Route: 048
     Dates: start: 200403
  3. VOLTAREN [Concomitant]
  4. SIMVASTATIN [Concomitant]
     Dosage: 10 MG, UNK

REACTIONS (3)
  - Migraine [Recovered/Resolved]
  - Nasal congestion [Not Recovered/Not Resolved]
  - Anaemia [Not Recovered/Not Resolved]
